FAERS Safety Report 5726901-X (Version None)
Quarter: 2008Q2

REPORT INFORMATION
  Report Type: 
  Country: None (occurrence: None)
  Receive Date: 20080502
  Receipt Date: 20080424
  Transmission Date: 20081010
  Serious: Yes (Death)
  Sender: FDA-Public Use
  Company Number: US-PFIZER INC-2008036532

PATIENT
  Sex: Female

DRUGS (11)
  1. CELEBREX [Suspect]
     Indication: OSTEOARTHRITIS
  2. REMERON [Concomitant]
  3. RISPERDAL [Concomitant]
  4. LANOXIN [Concomitant]
  5. VISTARIL [Concomitant]
  6. KLONOPIN [Concomitant]
  7. LASIX [Concomitant]
  8. ZOLOFT [Concomitant]
  9. ALL OTHER THERAPEUTIC PRODUCTS [Concomitant]
  10. PROVIGIL [Concomitant]
  11. MORPHINE [Concomitant]
     Route: 062

REACTIONS (1)
  - DEATH [None]
